FAERS Safety Report 7383662-9 (Version None)
Quarter: 2011Q1

REPORT INFORMATION
  Report Type: 
  Country: None (occurrence: None)
  Receive Date: 20110330
  Receipt Date: 20110317
  Transmission Date: 20110831
  Serious: Yes (Other)
  Sender: FDA-Public Use
  Company Number: RO-GENENTECH-315592

PATIENT
  Sex: Female
  Weight: 65 kg

DRUGS (4)
  1. IMURAN [Concomitant]
     Indication: RHEUMATOID ARTHRITIS
     Dosage: 100 MG, QID
     Route: 048
     Dates: start: 20070601
  2. PLAQUENIL [Concomitant]
     Indication: RHEUMATOID ARTHRITIS
     Dosage: UNK
     Route: 048
     Dates: start: 20070101
  3. MABTHERA [Suspect]
     Indication: RHEUMATOID ARTHRITIS
     Dosage: 1000 MG, Q2W
     Route: 042
     Dates: start: 20100216
  4. SULFASALAZINA [Concomitant]
     Indication: RHEUMATOID ARTHRITIS
     Dosage: UNK
     Route: 048
     Dates: start: 20070101

REACTIONS (1)
  - PSORIASIS [None]
